FAERS Safety Report 8559949-0 (Version None)
Quarter: 2012Q3

REPORT INFORMATION
  Report Type: 
  Country: None (occurrence: None)
  Receive Date: 20120802
  Receipt Date: 20120726
  Transmission Date: 20120928
  Serious: Yes (Hospitalization)
  Sender: FDA-Public Use
  Company Number: CO-NOVOPROD-356897

PATIENT
  Age: 21 Year
  Sex: Male
  Weight: 55 kg

DRUGS (2)
  1. NOVOSEVEN RT [Suspect]
     Indication: FACTOR VIII DEFICIENCY
     Dosage: 36 MG, QD
     Route: 065
     Dates: start: 20120720
  2. NOVOSEVEN RT [Suspect]
     Dosage: 24 MG, QD
     Route: 065

REACTIONS (1)
  - HEMIPARESIS [None]
